FAERS Safety Report 9531980 (Version 4)
Quarter: 2018Q1

REPORT INFORMATION
  Report Type: Spontaneous
  Country: CA (occurrence: CA)
  Receive Date: 20130918
  Receipt Date: 20180312
  Transmission Date: 20180509
  Serious: Yes (Life-Threatening, Other)
  Sender: FDA-Public Use
  Company Number: CA-009507513-1309CAN007511

PATIENT
  Age: 61 Year
  Sex: Female
  Weight: 97 kg

DRUGS (13)
  1. STATEX (MORPHINE SULFATE) [Suspect]
     Active Substance: MORPHINE SULFATE
     Indication: PRODUCT USED FOR UNKNOWN INDICATION
     Dosage: 10 MG, 4 EVERY 1 DAY(S)
     Route: 048
  2. BETAMETHASONE. [Suspect]
     Active Substance: BETAMETHASONE
     Dosage: 0.1 PERCENT, AS REQUIRED
     Route: 065
  3. SEROQUEL [Suspect]
     Active Substance: QUETIAPINE FUMARATE
     Indication: DEPRESSION
     Dosage: 75 MG, 1 EVERY 1 DAY(S), AT BEDTIME
     Route: 048
  4. ARTHROTEC [Suspect]
     Active Substance: DICLOFENAC SODIUM\MISOPROSTOL
     Indication: MUSCULOSKELETAL PAIN
     Dosage: 75 MG, 2 EVERY 1 DAY( S)
     Route: 048
     Dates: start: 20110729, end: 20120507
  5. EFFEXOR XR [Concomitant]
     Active Substance: VENLAFAXINE HYDROCHLORIDE
     Dosage: UNK
  6. FLONASE [Concomitant]
     Active Substance: FLUTICASONE PROPIONATE
     Dosage: METERED-DOSE (PUMP)
     Route: 065
  7. LYRICA [Suspect]
     Active Substance: PREGABALIN
     Dosage: 150 MG, 2 EVERY 1 DAY( S)
     Route: 048
  8. ARTHROTEC [Suspect]
     Active Substance: DICLOFENAC SODIUM\MISOPROSTOL
     Indication: OSTEOARTHRITIS
  9. ELOCOM [Suspect]
     Active Substance: MOMETASONE FUROATE
     Dosage: UNK, PRN
     Route: 065
  10. MS CONTIN [Suspect]
     Active Substance: MORPHINE SULFATE
     Dosage: 210 MG, 1 EVERY 1 DAY(S)
     Route: 065
  11. TYLENOL WITH CODEINE [Suspect]
     Active Substance: ACETAMINOPHEN\CODEINE PHOSPHATE
     Indication: OSTEOARTHRITIS
     Dosage: 4.0 DOSAGE FORMS, AS REQUIRED
     Route: 048
     Dates: start: 20110328, end: 20120402
  12. BETADERM (BETAMETHASONE VALERATE) [Concomitant]
     Dosage: 0.1 % CREAM, TWICE DAILY AS NEEDED
     Route: 065
  13. EFFEXOR XR [Suspect]
     Active Substance: VENLAFAXINE HYDROCHLORIDE
     Dosage: 225 MG, 1 EVERY 1 DAY( S)
     Route: 048

REACTIONS (2)
  - Drug-induced liver injury [Recovered/Resolved]
  - Hepatitis [Unknown]

NARRATIVE: CASE EVENT DATE: 2012
